FAERS Safety Report 8053114 (Version 8)
Quarter: 2012Q4

REPORT INFORMATION
  Report Type: Report from Study
  Country: BR (occurrence: BR)
  Receive Date: 20110725
  Receipt Date: 20121126
  Transmission Date: 20130627
  Serious: Yes (Death, Hospitalization)
  Sender: FDA-Public Use
  Company Number: BR-BRISTOL-MYERS SQUIBB COMPANY-15919426

PATIENT
  Age: 40 Year
  Sex: Male

DRUGS (4)
  1. IPILIMUMAB [Suspect]
     Indication: MALIGNANT MELANOMA
     Dosage: Interrupted on 30Jun11
     Route: 042
     Dates: start: 20110630, end: 20110630
  2. METHADONE [Concomitant]
  3. GABAPENTIN [Concomitant]
  4. BROMAZEPAM [Concomitant]

REACTIONS (3)
  - Respiratory failure [Fatal]
  - Malignant neoplasm progression [Fatal]
  - Hypercalcaemia [Recovered/Resolved]
